FAERS Safety Report 7575409-8 (Version None)
Quarter: 2011Q2

REPORT INFORMATION
  Report Type: 
  Country: None (occurrence: None)
  Receive Date: 20110627
  Receipt Date: 20110616
  Transmission Date: 20111010
  Serious: Yes (Life-Threatening, Hospitalization)
  Sender: FDA-Public Use
  Company Number: DE-CELGENEUS-062-C5013-10091500

PATIENT
  Age: 69 Year
  Sex: Male
  Weight: 98 kg

DRUGS (22)
  1. LENALIDOMIDE [Suspect]
     Dosage: 25 MILLIGRAM
     Route: 048
     Dates: start: 20110228
  2. MORPHINHEMISULFAT [Concomitant]
     Dosage: 20 MILLIGRAM
     Route: 048
     Dates: start: 20100802, end: 20100803
  3. METOPROLOL TARTRATE [Concomitant]
     Indication: HYPERTENSION
     Dosage: 47.5 MILLIGRAM
     Route: 048
     Dates: start: 20100201
  4. DEXAMETHASONE [Suspect]
     Indication: MULTIPLE MYELOMA
     Dosage: 40 MILLIGRAM
     Route: 065
     Dates: start: 20100802
  5. DEXAMETHASONE [Suspect]
     Dosage: 40 MILLIGRAM
     Route: 065
     Dates: start: 20100830, end: 20100915
  6. DEXAMETHASONE [Suspect]
     Route: 065
     Dates: start: 20110228
  7. ENOXAPRIN-NATRIUM [Concomitant]
     Indication: THROMBOSIS PROPHYLAXIS
     Dosage: 160 MILLIGRAM
     Route: 058
     Dates: start: 20100809
  8. ROSICED [Concomitant]
     Route: 061
     Dates: start: 20100830
  9. MARCUMAR [Concomitant]
     Route: 048
  10. LENALIDOMIDE [Suspect]
     Dosage: 25 MILLIGRAM
     Route: 048
     Dates: start: 20101122
  11. MORPHINHEMISULFAT [Concomitant]
     Indication: BACK PAIN
     Dosage: 40 MILLIGRAM
     Route: 048
     Dates: start: 20100628, end: 20100801
  12. MORPHINHEMISULFAT [Concomitant]
     Dosage: 40 MILLIGRAM
     Route: 048
     Dates: start: 20100823
  13. LENALIDOMIDE [Suspect]
     Dosage: 25 MILLIGRAM
     Route: 048
     Dates: start: 20100830, end: 20100915
  14. LENALIDOMIDE [Suspect]
     Dosage: 25 MILLIGRAM
     Route: 048
     Dates: start: 20101220, end: 20110117
  15. PAMIDRONATE DISODIUM [Concomitant]
     Indication: PROPHYLAXIS
     Dosage: 3 MILLIGRAM
     Route: 051
     Dates: start: 20100629
  16. PANTOPRAZOLE [Concomitant]
     Indication: GASTRITIS PROPHYLAXIS
     Dosage: 20 MILLIGRAM
     Route: 048
     Dates: start: 20100601
  17. LENALIDOMIDE [Suspect]
     Indication: MULTIPLE MYELOMA
     Dosage: 25 MILLIGRAM
     Route: 048
     Dates: start: 20100802
  18. DEXAMETHASONE [Suspect]
     Route: 065
     Dates: start: 20101220, end: 20110117
  19. FOLSAN [Concomitant]
     Indication: FOLATE DEFICIENCY
     Dosage: 8/10MG
     Route: 048
     Dates: start: 20100601
  20. ENOXAPARIN SODIUM [Concomitant]
     Indication: ANTICOAGULANT THERAPY
     Route: 065
  21. MORPHINHEMISULFAT [Concomitant]
     Route: 048
     Dates: start: 20100804, end: 20100822
  22. MOVIPREP [Concomitant]
     Indication: CONSTIPATION
     Route: 048
     Dates: start: 20100601

REACTIONS (2)
  - DIVERTICULAR PERFORATION [None]
  - PERITONITIS [None]
